FAERS Safety Report 11623247 (Version 1)
Quarter: 2015Q4

REPORT INFORMATION
  Report Type: Spontaneous
  Country: US (occurrence: US)
  Receive Date: 20151013
  Receipt Date: 20151013
  Transmission Date: 20160304
  Serious: No
  Sender: FDA-Public Use
  Company Number: US-JNJFOC-20150111443

PATIENT
  Age: 24 Month
  Sex: Male
  Weight: 12.7 kg

DRUGS (1)
  1. JR TYLENOL [Suspect]
     Active Substance: ACETAMINOPHEN
     Indication: ACCIDENTAL EXPOSURE TO PRODUCT BY CHILD
     Dosage: UNCLEAR IF 7 TABLETS OF 160 MG OR 560 MG
     Route: 048
     Dates: start: 20120422

REACTIONS (2)
  - Accidental exposure to product by child [Recovered/Resolved]
  - Accidental overdose [Recovered/Resolved]

NARRATIVE: CASE EVENT DATE: 20120422
